FAERS Safety Report 25651180 (Version 1)
Quarter: 2025Q3

REPORT INFORMATION
  Report Type: Spontaneous
  Country: EU (occurrence: EU)
  Receive Date: 20250806
  Receipt Date: 20250806
  Transmission Date: 20251021
  Serious: Yes (Hospitalization)
  Sender: PFIZER
  Company Number: None

PATIENT
  Age: 28 Year
  Sex: Female
  Weight: 70 kg

DRUGS (2)
  1. ADRIAMYCIN [Suspect]
     Active Substance: DOXORUBICIN HYDROCHLORIDE
     Indication: Leiomyosarcoma
     Route: 042
     Dates: start: 202302, end: 20230410
  2. IFOSFAMIDE [Suspect]
     Active Substance: IFOSFAMIDE
     Indication: Leiomyosarcoma
     Route: 042
     Dates: start: 202302, end: 20230410

REACTIONS (2)
  - Maternal exposure before pregnancy [Recovered/Resolved]
  - Placental transfusion syndrome [Recovered/Resolved]

NARRATIVE: CASE EVENT DATE: 20230201
